FAERS Safety Report 24587618 (Version 1)
Quarter: 2024Q4

REPORT INFORMATION
  Report Type: Spontaneous
  Country: US (occurrence: US)
  Receive Date: 20241107
  Receipt Date: 20241107
  Transmission Date: 20250115
  Serious: Yes (Other)
  Sender: BAUSCH AND LOMB
  Company Number: US-BAUSCHBL-2024BNL036724

PATIENT
  Age: 58 Year
  Sex: Male

DRUGS (2)
  1. MURO 128 [Suspect]
     Active Substance: SODIUM CHLORIDE
     Indication: Corneal dystrophy
     Dosage: 1
     Route: 047
     Dates: start: 2014, end: 2024
  2. MURO 128 [Suspect]
     Active Substance: SODIUM CHLORIDE
     Indication: Corneal oedema

REACTIONS (6)
  - Surgery [Unknown]
  - Eye pain [Unknown]
  - Therapeutic product effect decreased [Unknown]
  - Product physical consistency issue [Unknown]
  - Product quality issue [Unknown]
  - Poor quality product administered [Unknown]
